FAERS Safety Report 12957936 (Version 1)
Quarter: 2016Q4

REPORT INFORMATION
  Report Type: Other
  Country: US (occurrence: US)
  Receive Date: 20161118
  Receipt Date: 20161118
  Transmission Date: 20170207
  Serious: Yes (Hospitalization)
  Sender: FDA-Public Use
  Company Number: US--2016-US-000034

PATIENT
  Age: 65 Year
  Sex: Female

DRUGS (1)
  1. LOSARTAN POTASSIUM TABLETS USP, 50 MG (VIVIMED) [Suspect]
     Active Substance: LOSARTAN POTASSIUM
     Indication: HYPERTENSION
     Dosage: 50 MG

REACTIONS (1)
  - Ischaemic hepatitis [Recovered/Resolved]
